FAERS Safety Report 4852450-7 (Version None)
Quarter: 2005Q4

REPORT INFORMATION
  Report Type: 
  Country: None (occurrence: None)
  Receive Date: 20051213
  Receipt Date: 20051125
  Transmission Date: 20060501
  Serious: Yes (Other)
  Sender: FDA-Public Use
  Company Number: PHBS2005SE17367

PATIENT
  Age: 47 Year
  Sex: Female

DRUGS (4)
  1. PAPAVERIN [Concomitant]
     Dosage: UNK, PRN
  2. BACLOFEN [Concomitant]
  3. VITAMIN B-12 [Concomitant]
  4. ZELNORM [Suspect]
     Indication: IRRITABLE BOWEL SYNDROME
     Dosage: 6 MG, BID

REACTIONS (4)
  - DEEP VEIN THROMBOSIS [None]
  - DYSPNOEA [None]
  - OEDEMA PERIPHERAL [None]
  - PULMONARY EMBOLISM [None]
